FAERS Safety Report 12237610 (Version 1)
Quarter: 2016Q2

REPORT INFORMATION
  Report Type: Spontaneous
  Country: IT (occurrence: IT)
  Receive Date: 20160405
  Receipt Date: 20160405
  Transmission Date: 20160815
  Serious: Yes (Other)
  Sender: FDA-Public Use
  Company Number: IT-ASTRAZENECA-2016SE34473

PATIENT
  Age: 16413 Day
  Sex: Male
  Weight: 76 kg

DRUGS (2)
  1. LUCEN [Suspect]
     Active Substance: ESOMEPRAZOLE
     Indication: OESOPHAGITIS
     Route: 048
     Dates: start: 20160227
  2. BASICA VITAL [Concomitant]
     Route: 048

REACTIONS (8)
  - Agitation [Not Recovered/Not Resolved]
  - Arrhythmia [Not Recovered/Not Resolved]
  - Somnolence [Not Recovered/Not Resolved]
  - Hypersensitivity [Not Recovered/Not Resolved]
  - Facial spasm [Unknown]
  - Myalgia [Not Recovered/Not Resolved]
  - Anxiety [Unknown]
  - Restlessness [Unknown]

NARRATIVE: CASE EVENT DATE: 20160229
